FAERS Safety Report 13548007 (Version 1)
Quarter: 2017Q2

REPORT INFORMATION
  Report Type: Other
  Country: GB (occurrence: GB)
  Receive Date: 20170516
  Receipt Date: 20170516
  Transmission Date: 20170830
  Serious: Yes (Life-Threatening)
  Sender: FDA-Public Use
  Company Number: GB-HETERO LABS LTD-2020786

PATIENT

DRUGS (4)
  1. MARAVIROC [Suspect]
     Active Substance: MARAVIROC
     Indication: ANTIRETROVIRAL THERAPY
     Route: 065
  2. RALTEGRAVIR. [Suspect]
     Active Substance: RALTEGRAVIR
  3. TENOFOVIR DISOPROXIL FUMARATE. [Suspect]
     Active Substance: TENOFOVIR DISOPROXIL FUMARATE
     Route: 065
  4. DARUNAVIR, RITONAVIR [Suspect]
     Active Substance: DARUNAVIR\RITONAVIR
     Route: 065

REACTIONS (2)
  - Off label use [Unknown]
  - Alanine aminotransferase increased [Unknown]
